FAERS Safety Report 9530908 (Version 1)
Quarter: 2013Q2

REPORT INFORMATION
  Report Type: Spontaneous
  Country: US (occurrence: None)
  Receive Date: 20130418
  Receipt Date: 20130418
  Transmission Date: 20140414
  Serious: Yes (Hospitalization)
  Sender: FDA-Public Use
  Company Number: 1203USA02443

PATIENT
  Age: 22 Year
  Sex: Male

DRUGS (3)
  1. SINGULAIR (MONTELUKAST SODIUM) TABLET [Suspect]
     Indication: HYPERSENSITIVITY
     Route: 048
     Dates: start: 20110616, end: 20111223
  2. SINGULAIR (MONTELUKAST SODIUM) TABLET [Suspect]
     Indication: ASTHMA
     Route: 048
     Dates: start: 20110616, end: 20111223
  3. ALVESCO (CICLESONIDE) [Concomitant]

REACTIONS (7)
  - Anxiety [None]
  - Depression [None]
  - Hallucination [None]
  - Delusion [None]
  - Headache [None]
  - Emotional poverty [None]
  - Withdrawal syndrome [None]
